FAERS Safety Report 4264819-2 (Version None)
Quarter: 2004Q1

REPORT INFORMATION
  Report Type: 
  Country: None (occurrence: None)
  Receive Date: 20040105
  Receipt Date: 20031230
  Transmission Date: 20041129
  Serious: No
  Sender: FDA-Public Use
  Company Number: 22761

PATIENT
  Age: 60 Year
  Sex: Female

DRUGS (4)
  1. MAXAIR [Suspect]
     Indication: EMPHYSEMA
     Dosage: 400 MCG, AS NECESSARY, RESPIRATORY (INHALATION)
     Dates: start: 20031224, end: 20031224
  2. COMBIVENT [Suspect]
  3. OXYCONTIN [Concomitant]
  4. ULTRACET [Concomitant]

REACTIONS (6)
  - CHEST PAIN [None]
  - CONFUSIONAL STATE [None]
  - FATIGUE [None]
  - FEELING ABNORMAL [None]
  - INTESTINAL HYPERMOTILITY [None]
  - TACHYCARDIA [None]
